FAERS Safety Report 8735998 (Version 2)
Quarter: 2012Q4

REPORT INFORMATION
  Report Type: 
  Country: US (occurrence: US)
  Receive Date: 20120822
  Receipt Date: 20121219
  Transmission Date: 20130627
  Serious: Yes (Other)
  Sender: FDA-Public Use
  Company Number: US-PFIZER INC-2012203769

PATIENT
  Age: 52 Year
  Sex: Male
  Weight: 73.92 kg

DRUGS (4)
  1. SKELAXIN [Suspect]
     Indication: BACK DISORDER
     Dosage: 800 mg, once or two times a day
  2. SKELAXIN [Suspect]
     Dosage: 800 mg, 1x/day (take 1 tablet by mouth)
     Route: 048
     Dates: start: 20121217
  3. PERCOCET [Concomitant]
     Indication: BACK DISORDER
     Dosage: 10/325 mg, two to three times or sometimes four times a day
     Dates: start: 2005
  4. DIAZEPAM [Concomitant]
     Indication: SLEEP DISORDER
     Dosage: 10 mg, daily
     Dates: start: 2005

REACTIONS (1)
  - Atrial fibrillation [Unknown]
